FAERS Safety Report 7897310-2 (Version None)
Quarter: 2011Q4

REPORT INFORMATION
  Report Type: 
  Country: None (occurrence: None)
  Receive Date: 20111107
  Receipt Date: 20111101
  Transmission Date: 20120403
  Serious: Yes (Other)
  Sender: FDA-Public Use
  Company Number: PHEH2011US08325

PATIENT
  Sex: Female

DRUGS (5)
  1. CALCIUM [Concomitant]
     Dosage: 600 MG, BID
  2. RECLAST [Suspect]
     Dosage: UNK UKN, UNK
     Route: 042
     Dates: start: 20100901
  3. SIMVASTATIN [Concomitant]
     Dosage: 20 MG, UNK
  4. SERTRALINE HYDROCHLORIDE [Concomitant]
     Dosage: 25 MG, TID
  5. VITAMIN D [Concomitant]
     Dosage: 400 IU, BID

REACTIONS (2)
  - FEMUR FRACTURE [None]
  - FALL [None]
